FAERS Safety Report 10274027 (Version 1)
Quarter: 2014Q2

REPORT INFORMATION
  Report Type: Spontaneous
  Country: US (occurrence: None)
  Receive Date: 20140630
  Receipt Date: 20140630
  Transmission Date: 20141212
  Serious: Yes (Death)
  Sender: FDA-Public Use
  Company Number: None

PATIENT
  Sex: Male

DRUGS (1)
  1. XTANDI 40 MG ASTELLA PHARMA USA, INC [Suspect]
     Indication: PROSTATE CANCER
     Dosage: 05/06/2014- DEATH, XTANDI 40MG, 4 TABLET DAILY, BY MOUTH
     Route: 048
     Dates: start: 20140506

REACTIONS (1)
  - Bone cancer [None]
